FAERS Safety Report 8922843 (Version 1)
Quarter: 2012Q4

REPORT INFORMATION
  Report Type: 
  Country: BR (occurrence: BR)
  Receive Date: 20121123
  Receipt Date: 20121123
  Transmission Date: 20130627
  Serious: Yes (Disabling)
  Sender: FDA-Public Use
  Company Number: BR-ROCHE-1159358

PATIENT
  Age: 84 Year
  Sex: Female

DRUGS (4)
  1. RIVOTRIL [Suspect]
     Indication: DEMENTIA ALZHEIMER^S TYPE
     Route: 065
  2. SEROQUEL XR [Suspect]
     Indication: DEMENTIA ALZHEIMER^S TYPE
     Route: 048
  3. PROPRANOLOL [Concomitant]
     Route: 048
  4. RISPERIDON [Concomitant]
     Route: 048

REACTIONS (3)
  - Upper limb fracture [Unknown]
  - Abasia [Not Recovered/Not Resolved]
  - Insomnia [Not Recovered/Not Resolved]
